FAERS Safety Report 9799549 (Version 1)
Quarter: 2014Q1

REPORT INFORMATION
  Report Type: Spontaneous
  Country: US (occurrence: US)
  Receive Date: 20140106
  Receipt Date: 20140106
  Transmission Date: 20141002
  Serious: No
  Sender: FDA-Public Use
  Company Number: US-GILEAD-2010-0030202

PATIENT
  Age: 35 Year
  Sex: Female
  Weight: 58.06 kg

DRUGS (17)
  1. LETAIRIS [Suspect]
     Indication: PULMONARY ARTERIAL HYPERTENSION
     Route: 048
     Dates: start: 20100611
  2. REVATIO [Concomitant]
  3. FOLIC ACID [Concomitant]
  4. FUROSEMIDE [Concomitant]
  5. FIBERCON [Concomitant]
  6. COMPAZINE [Concomitant]
  7. ZOLOFT [Concomitant]
  8. COUMADIN [Concomitant]
  9. FERROUS SULFATE [Concomitant]
  10. DIGOXIN [Concomitant]
  11. NEXIUM [Concomitant]
  12. SPIRONOLACTONE [Concomitant]
  13. QUININE SULFATE [Concomitant]
  14. CALCIUM +D [Concomitant]
  15. LEVOTHYROXINE [Concomitant]
  16. COMPLETE MULTIVITAMIN [Concomitant]
  17. VITAMIN B-12 [Concomitant]

REACTIONS (3)
  - Nausea [Unknown]
  - Headache [Unknown]
  - Hot flush [Unknown]
